FAERS Safety Report 15487027 (Version 1)
Quarter: 2018Q4

REPORT INFORMATION
  Report Type: Spontaneous
  Country: JP (occurrence: JP)
  Receive Date: 20181011
  Receipt Date: 20181011
  Transmission Date: 20190205
  Serious: Yes (Other)
  Sender: FDA-Public Use
  Company Number: JP-SUN PHARMACEUTICAL INDUSTRIES LTD-2018RR-187306

PATIENT
  Age: 35 Year
  Sex: Male

DRUGS (2)
  1. MINOCYCLINE [Suspect]
     Active Substance: MINOCYCLINE\MINOCYCLINE HYDROCHLORIDE
     Indication: LEPROMATOUS LEPROSY
     Dosage: 100 MG, DAILY, SECOND CHEMOTHERAPY
     Route: 065
  2. DIAPHENYLSULFONE [Suspect]
     Active Substance: DAPSONE
     Indication: LEPROMATOUS LEPROSY
     Dosage: 100 MG, DAILY, SECOND CHEMOTHERAPY
     Route: 065

REACTIONS (4)
  - Leukoderma [Recovered/Resolved with Sequelae]
  - Lepromatous leprosy [Recovered/Resolved with Sequelae]
  - Skin depigmentation [Recovered/Resolved with Sequelae]
  - Melanocytic naevus [Recovered/Resolved with Sequelae]
